FAERS Safety Report 21580902 (Version 2)
Quarter: 2023Q2

REPORT INFORMATION
  Report Type: Report from Study
  Country: DE (occurrence: DE)
  Receive Date: 20221111
  Receipt Date: 20230623
  Transmission Date: 20230722
  Serious: Yes (Hospitalization, Other)
  Sender: FDA-Public Use
  Company Number: DE-ABBVIE-4190882

PATIENT
  Age: 71 Year
  Sex: Male
  Weight: 132 kg

DRUGS (5)
  1. SKYRIZI [Suspect]
     Active Substance: RISANKIZUMAB-RZAA
     Indication: Psoriasis
     Route: 058
     Dates: start: 20220502
  2. AMPICILLIN SODIUM\SULBACTAM SODIUM [Concomitant]
     Active Substance: AMPICILLIN SODIUM\SULBACTAM SODIUM
     Indication: Product used for unknown indication
  3. METAMIZOLE [Concomitant]
     Active Substance: METAMIZOLE
     Indication: Product used for unknown indication
     Dosage: MAX. 4X2 AS REQUIRED
  4. CANDESARTAN [Concomitant]
     Active Substance: CANDESARTAN
     Indication: Hypertension
     Dosage: START DATE AROUND 2019
     Route: 048
     Dates: start: 2019
  5. LERCANIDIPINE [Concomitant]
     Active Substance: LERCANIDIPINE
     Indication: Hypertension
     Dosage: START DATE  AROUND 2017
     Route: 048
     Dates: start: 2017

REACTIONS (8)
  - Emphysematous cholecystitis [Recovered/Resolved]
  - Haematoma infection [Recovered/Resolved]
  - Pneumonia [Recovered/Resolved]
  - Cholelithiasis [Recovered/Resolved]
  - Cholecystitis acute [Recovered/Resolved]
  - Cholecystitis [Recovered/Resolved]
  - Pleural effusion [Recovered/Resolved]
  - Thoracic cavity drainage [Unknown]

NARRATIVE: CASE EVENT DATE: 20220809
